FAERS Safety Report 16514958 (Version 4)
Quarter: 2019Q4

REPORT INFORMATION
  Report Type: Spontaneous
  Country: US (occurrence: US)
  Receive Date: 20190702
  Receipt Date: 20191015
  Transmission Date: 20200122
  Serious: No
  Sender: FDA-Public Use
  Company Number: US-JNJFOC-20190636470

PATIENT
  Age: 63 Year
  Sex: Male

DRUGS (2)
  1. IMBRUVICA [Suspect]
     Active Substance: IBRUTINIB
     Dosage: 420 MG, QD
     Route: 048
     Dates: start: 20190122
  2. IMBRUVICA [Suspect]
     Active Substance: IBRUTINIB
     Indication: MARGINAL ZONE LYMPHOMA
     Dosage: 420 MG, QD
     Route: 048
     Dates: start: 2019

REACTIONS (12)
  - Prostatitis [Not Recovered/Not Resolved]
  - Oropharyngeal pain [Recovering/Resolving]
  - Urinary tract infection [Recovering/Resolving]
  - Dysuria [Unknown]
  - Hypertension [Recovering/Resolving]
  - Headache [Unknown]
  - Prostate infection [Recovered/Resolved]
  - Ill-defined disorder [Recovering/Resolving]
  - Rhinorrhoea [Recovering/Resolving]
  - Pyrexia [Recovering/Resolving]
  - Back pain [Unknown]
  - Sinusitis [Recovering/Resolving]

NARRATIVE: CASE EVENT DATE: 201903
